FAERS Safety Report 23668366 (Version 1)
Quarter: 2024Q1

REPORT INFORMATION
  Report Type: Spontaneous
  Country: US (occurrence: US)
  Receive Date: 20240325
  Receipt Date: 20240325
  Transmission Date: 20240410
  Serious: No
  Sender: FDA-Public Use
  Company Number: US-KYOWAKIRIN-2024KK005702

PATIENT

DRUGS (2)
  1. NOURIANZ [Suspect]
     Active Substance: ISTRADEFYLLINE
     Indication: Product used for unknown indication
     Dosage: 20 MG, BID (20MG TWICE DAILY()
     Route: 065
  2. NOURIANZ [Concomitant]
     Active Substance: ISTRADEFYLLINE
     Indication: Product used for unknown indication
     Dosage: TWO PILLS DAILY BUT WAS KNOCKED DOWN TO ONE DAILY
     Route: 065

REACTIONS (3)
  - Dry mouth [Unknown]
  - Obstruction [Unknown]
  - Movement disorder [Unknown]

NARRATIVE: CASE EVENT DATE: 20240317
